FAERS Safety Report 8376097 (Version 2)
Quarter: 2013Q1

REPORT INFORMATION
  Report Type: Report from Study
  Country: US (occurrence: US)
  Receive Date: 20120129
  Receipt Date: 20130129
  Transmission Date: 20140127
  Serious: No
  Sender: FDA-Public Use
  Company Number: US-ABBOTT-11P-163-0885656-00

PATIENT
  Age: 63 Year
  Sex: Male

DRUGS (15)
  1. HUMIRA 40 MG/0.8 ML PEN [Suspect]
     Indication: COLITIS ULCERATIVE
     Dates: start: 201110
  2. PREDNISONE [Concomitant]
     Indication: COLITIS ULCERATIVE
  3. PENTASA [Concomitant]
     Indication: COLITIS ULCERATIVE
  4. AMLODIPINE BESYLATE [Concomitant]
     Indication: HYPERTENSION
  5. CYMBALTA [Concomitant]
     Indication: DEPRESSION
  6. METOPROLOL SUCCINATE [Concomitant]
     Indication: BLOOD CHOLESTEROL INCREASED
     Dosage: ER EVERY DAY
  7. METOPROLOL SUCCINATE [Concomitant]
     Indication: HYPERTENSION
  8. CALCIUM [Concomitant]
     Indication: MINERAL SUPPLEMENTATION
  9. TYLENOL PM [Concomitant]
     Indication: PRODUCT USED FOR UNKNOWN INDICATION
  10. FISH OIL [Concomitant]
     Indication: PRODUCT USED FOR UNKNOWN INDICATION
     Dosage: EVERY DAY
  11. MULTIVITAMINS [Concomitant]
     Indication: PRODUCT USED FOR UNKNOWN INDICATION
     Dosage: EVERY DAY
  12. ASPIRIN [Concomitant]
     Indication: PRODUCT USED FOR UNKNOWN INDICATION
  13. CPAP MASK [Concomitant]
     Indication: PRODUCT USED FOR UNKNOWN INDICATION
  14. PENTASA [Concomitant]
     Indication: COLITIS ULCERATIVE
     Dosage: 8 PER DAY
  15. CRESTOR [Concomitant]
     Indication: BLOOD CHOLESTEROL INCREASED
     Dosage: EVERY DAY

REACTIONS (7)
  - Drug effect incomplete [Not Recovered/Not Resolved]
  - Diarrhoea [Not Recovered/Not Resolved]
  - Device malfunction [Unknown]
  - Device malfunction [Unknown]
  - Incorrect dose administered [Not Recovered/Not Resolved]
  - Wrong technique in drug usage process [Not Recovered/Not Resolved]
  - Off label use [Not Recovered/Not Resolved]
